FAERS Safety Report 20296745 (Version 1)
Quarter: 2022Q1

REPORT INFORMATION
  Report Type: Spontaneous
  Country: US (occurrence: None)
  Receive Date: 20220105
  Receipt Date: 20220105
  Transmission Date: 20220423
  Serious: No
  Sender: FDA-Public Use
  Company Number: US-ROCHE-2814715

PATIENT
  Sex: Female

DRUGS (2)
  1. HEMLIBRA [Suspect]
     Active Substance: EMICIZUMAB-KXWH
     Indication: Von Willebrand^s disease
     Route: 065
  2. VON WILLEBRAND FACTOR HUMAN [Concomitant]
     Active Substance: VON WILLEBRAND FACTOR HUMAN

REACTIONS (2)
  - Off label use [Unknown]
  - No adverse event [Unknown]
